FAERS Safety Report 8341742-5 (Version None)
Quarter: 2012Q2

REPORT INFORMATION
  Report Type: 
  Country: None (occurrence: None)
  Receive Date: 20120507
  Receipt Date: 20120426
  Transmission Date: 20120825
  Serious: Yes (Other)
  Sender: FDA-Public Use
  Company Number: US-ASTRAZENECA-2012SE10549

PATIENT
  Age: 61 Year
  Sex: Female

DRUGS (5)
  1. ZANTAC [Concomitant]
  2. LIPITOR [Concomitant]
  3. NEXIUM [Suspect]
     Route: 048
  4. CRESTOR [Concomitant]
  5. PEPCID [Concomitant]

REACTIONS (5)
  - TENDON RUPTURE [None]
  - CONDITION AGGRAVATED [None]
  - MUSCLE DISORDER [None]
  - GASTROOESOPHAGEAL REFLUX DISEASE [None]
  - MUSCULAR WEAKNESS [None]
